FAERS Safety Report 16593627 (Version 1)
Quarter: 2019Q3

REPORT INFORMATION
  Report Type: Spontaneous
  Country: ES (occurrence: ES)
  Receive Date: 20190718
  Receipt Date: 20190718
  Transmission Date: 20191004
  Serious: Yes (Other)
  Sender: FDA-Public Use
  Company Number: ES-009507513-1907ESP009480

PATIENT
  Sex: Female

DRUGS (1)
  1. ATOZET 10 MG/80 MG COMPRIMIDOS RECUBIERTOS CON PELICULA [Suspect]
     Active Substance: ATORVASTATIN CALCIUM\EZETIMIBE
     Dates: start: 20190315, end: 20190325

REACTIONS (3)
  - Nausea [Recovered/Resolved]
  - Abnormal loss of weight [Recovered/Resolved]
  - Abdominal pain upper [Recovered/Resolved]

NARRATIVE: CASE EVENT DATE: 20190315
